FAERS Safety Report 9731086 (Version 3)
Quarter: 2014Q1

REPORT INFORMATION
  Report Type: Report from Study
  Country: GB (occurrence: GB)
  Receive Date: 20131203
  Receipt Date: 20140117
  Transmission Date: 20141002
  Serious: Yes (Death, Hospitalization, Other)
  Sender: FDA-Public Use
  Company Number: GB-MILLENNIUM PHARMACEUTICALS, INC.-2013JNJ000229

PATIENT
  Sex: 0

DRUGS (8)
  1. VELCADE [Suspect]
     Indication: PLASMA CELL MYELOMA
     Dosage: 1 MG/M2, CYCLIC
     Route: 065
     Dates: start: 20130424, end: 20130801
  2. DOXORUBICIN [Suspect]
     Indication: PLASMA CELL MYELOMA
     Dosage: 9 MG/M2, CYCLIC
     Route: 065
     Dates: start: 20130424, end: 20130801
  3. DEXAMETHASONE [Suspect]
     Indication: PLASMA CELL MYELOMA
     Dosage: 20 MG, CYCLIC
     Route: 065
     Dates: start: 20130424, end: 20130801
  4. CO-TRIMOXAZOLE [Concomitant]
     Dosage: 480 MG, 3/WEEK
  5. ACICLOVIR [Concomitant]
     Dosage: 200 MG, BID
  6. RANITIDINE [Concomitant]
     Dosage: 150 MG, UNK
  7. ALLOPURINOL [Concomitant]
     Dosage: 100 MG, OD
  8. MIRTAZAPINE [Concomitant]
     Dosage: 30 MG, OD

REACTIONS (1)
  - Cerebrovascular accident [Fatal]
